FAERS Safety Report 6752737-7 (Version None)
Quarter: 2010Q2

REPORT INFORMATION
  Report Type: 
  Country: None (occurrence: None)
  Receive Date: 20100528
  Receipt Date: 20100513
  Transmission Date: 20101027
  Serious: Yes (Hospitalization)
  Sender: FDA-Public Use
  Company Number: ADE2009-0771

PATIENT
  Age: 73 Year
  Sex: Female
  Weight: 63.49 kg

DRUGS (6)
  1. HYDROCHLOROTHIAZIDE [Suspect]
     Dosage: 25MG, DAILY, ORAL
     Route: 048
     Dates: start: 20010101, end: 20080915
  2. STUDY DRUG (CODE NOT BROKEN) [Suspect]
     Indication: OSTEOARTHRITIS
     Dosage: DAILY, ORAL
     Route: 048
     Dates: start: 20070521, end: 20080915
  3. NIFEREX [Suspect]
     Dates: start: 20080108
  4. FIBERCON [Suspect]
     Dates: start: 20060101
  5. MULTI-VITAMINS [Suspect]
     Dates: start: 19900101
  6. LOVAZA [Suspect]
     Dates: start: 20080701

REACTIONS (11)
  - ANAEMIA [None]
  - DEHYDRATION [None]
  - DIARRHOEA [None]
  - HEPATITIS [None]
  - HYPOKALAEMIA [None]
  - HYPONATRAEMIA [None]
  - HYPOPHOSPHATAEMIA [None]
  - KIDNEY INFECTION [None]
  - RENAL FAILURE ACUTE [None]
  - URINARY TRACT INFECTION [None]
  - UROSEPSIS [None]
